FAERS Safety Report 4872774-7 (Version None)
Quarter: 2006Q1

REPORT INFORMATION
  Report Type: 
  Country: None (occurrence: None)
  Receive Date: 20060105
  Receipt Date: 20051229
  Transmission Date: 20060701
  Serious: Yes (Hospitalization)
  Sender: FDA-Public Use
  Company Number: US-BRISTOL-MYERS SQUIBB COMPANY-13232186

PATIENT
  Age: 71 Year
  Sex: Female
  Weight: 85 kg

DRUGS (8)
  1. CARBOPLATIN [Suspect]
     Indication: BREAST CANCER METASTATIC
     Dosage: GIVEN DAY 1 + DAY 8 EVERY 3 WEEKS. THERAPY START DATE 03-NOV-2005.
     Dates: start: 20051220, end: 20051220
  2. IRINOTECAN HCL [Suspect]
     Indication: BREAST CANCER METASTATIC
     Dosage: GIVEN DAYS 1 AND DAY 8 EVERY 3 WEEKS. THERAPY START DATE 03-NOV-2005.
     Dates: start: 20051220, end: 20051220
  3. MULTI-VITAMIN [Concomitant]
     Dosage: DOSAGE FORM = 1 TABLET
     Route: 048
     Dates: start: 20030122
  4. TYLENOL [Concomitant]
     Indication: PAIN
     Dosage: 250 MG, 1-2 TABLETS AS NEEDED
     Route: 048
     Dates: start: 20050505
  5. DARVOCET [Concomitant]
     Indication: PAIN
     Dosage: 1-2 TABLETS AS NEEDED
     Route: 048
     Dates: start: 20050606
  6. WARFARIN [Concomitant]
     Indication: INTRAVENOUS CATHETER MANAGEMENT
     Route: 048
     Dates: start: 20050720
  7. ZOFRAN [Concomitant]
     Indication: NAUSEA
     Route: 048
     Dates: start: 20051220
  8. BENEFIBER [Concomitant]
     Indication: CONSTIPATION
     Route: 048
     Dates: start: 20051213

REACTIONS (2)
  - DEHYDRATION [None]
  - DIARRHOEA [None]
